FAERS Safety Report 6898608-7 (Version None)
Quarter: 2010Q3

REPORT INFORMATION
  Report Type: 
  Country: None (occurrence: None)
  Receive Date: 20100802
  Receipt Date: 20071102
  Transmission Date: 20110219
  Serious: No
  Sender: FDA-Public Use
  Company Number: US-PFIZER INC-2007077410

PATIENT
  Sex: Male
  Weight: 72.6 kg

DRUGS (13)
  1. LYRICA [Suspect]
     Indication: FIBROMYALGIA
     Dates: start: 20070901, end: 20070913
  2. CALCIUM [Concomitant]
  3. VITAMIN B-12 [Concomitant]
  4. MULTI-VITAMINS [Concomitant]
  5. CARDURA [Concomitant]
  6. ATENOLOL [Concomitant]
  7. DIOVANE [Concomitant]
  8. DIGOXIN [Concomitant]
  9. ALLEGRA [Concomitant]
  10. LASIX [Concomitant]
  11. PLAVIX [Concomitant]
  12. ACETYLSALICYLIC ACID SRT [Concomitant]
  13. RANITIDINE [Concomitant]

REACTIONS (4)
  - CONFUSIONAL STATE [None]
  - MALAISE [None]
  - MEMORY IMPAIRMENT [None]
  - VISUAL IMPAIRMENT [None]
